FAERS Safety Report 8824370 (Version 1)
Quarter: 2012Q4

REPORT INFORMATION
  Report Type: 
  Country: BR (occurrence: BR)
  Receive Date: 20121004
  Receipt Date: 20121004
  Transmission Date: 20130627
  Serious: Yes (Hospitalization)
  Sender: FDA-Public Use
  Company Number: BR-AMGEN-BRASP2012062424

PATIENT
  Age: 58 Year
  Sex: Female
  Weight: 54 kg

DRUGS (4)
  1. ENBREL [Suspect]
     Indication: RHEUMATOID ARTHRITIS
     Dosage: 50 mg, once weekly
     Route: 058
     Dates: start: 20120223
  2. PREDNISONE [Concomitant]
     Dosage: 5 mg, 1x/day
     Dates: start: 2002
  3. PARACETAMOL [Concomitant]
     Indication: PAIN
     Dosage: 75 mg, as needed
     Dates: start: 2008
  4. RIVOTRIL [Concomitant]
     Dosage: 2 mg, 1x/day at night
     Dates: start: 2006

REACTIONS (5)
  - Cholelithiasis [Unknown]
  - Drug ineffective [Unknown]
  - Pain in extremity [Unknown]
  - Oedema peripheral [Unknown]
  - Elbow deformity [Unknown]
